FAERS Safety Report 13363890 (Version 1)
Quarter: 2017Q1

REPORT INFORMATION
  Report Type: Spontaneous
  Country: US (occurrence: US)
  Receive Date: 20170323
  Receipt Date: 20170323
  Transmission Date: 20170429
  Serious: Yes (Other)
  Sender: FDA-Public Use
  Company Number: US-BRISTOL-MYERS SQUIBB COMPANY-BMS-2017-025068

PATIENT

DRUGS (2)
  1. BIVALIRUDIN. [Suspect]
     Active Substance: BIVALIRUDIN
     Indication: HEPARIN-INDUCED THROMBOCYTOPENIA
     Route: 065
  2. WARFARIN SODIUM. [Suspect]
     Active Substance: WARFARIN SODIUM
     Indication: HEPARIN-INDUCED THROMBOCYTOPENIA
     Route: 065

REACTIONS (2)
  - Packed red blood cell transfusion [Unknown]
  - Haemorrhage [Unknown]
